FAERS Safety Report 20931410 (Version 1)
Quarter: 2022Q2

REPORT INFORMATION
  Report Type: Report from Study
  Country: US (occurrence: US)
  Receive Date: 20220608
  Receipt Date: 20220608
  Transmission Date: 20220721
  Serious: Yes (Congenital Anomaly)
  Sender: FDA-Public Use
  Company Number: US-ABBVIE-22K-163-4423929-00

PATIENT
  Sex: Female
  Weight: 2.334 kg

DRUGS (8)
  1. RITONAVIR [Suspect]
     Active Substance: RITONAVIR
     Indication: Maternal exposure timing unspecified
     Dosage: FIRST TRIMESTER
     Route: 064
  2. RITONAVIR [Suspect]
     Active Substance: RITONAVIR
     Dosage: SECOND TRIMESTER
     Route: 064
  3. RITONAVIR [Suspect]
     Active Substance: RITONAVIR
     Dosage: THIRD TRIMESTER
     Route: 064
  4. ATAZANAVIR SULFATE\COBICISTAT [Suspect]
     Active Substance: ATAZANAVIR SULFATE\COBICISTAT
     Indication: Maternal exposure timing unspecified
     Dosage: FIRST TRIMESTER
     Route: 064
  5. BICTEGRAVIR\EMTRICITABINE\TENOFOVIR ALAFENAMIDE [Suspect]
     Active Substance: BICTEGRAVIR\EMTRICITABINE\TENOFOVIR ALAFENAMIDE
     Indication: Maternal exposure timing unspecified
     Dosage: FIRST TRIMESTER
     Route: 064
  6. ATAZANAVIR [Suspect]
     Active Substance: ATAZANAVIR
     Indication: Maternal exposure timing unspecified
     Dosage: FIRST TRIMESTER
     Route: 064
  7. ATAZANAVIR [Suspect]
     Active Substance: ATAZANAVIR
     Dosage: SECOND TRIMESTER
     Route: 064
  8. ATAZANAVIR [Suspect]
     Active Substance: ATAZANAVIR
     Dosage: THIRD TRIMESTER
     Route: 064

REACTIONS (2)
  - Hyperbilirubinaemia [Unknown]
  - Foetal exposure during pregnancy [Unknown]

NARRATIVE: CASE EVENT DATE: 20201126
